FAERS Safety Report 9570425 (Version 1)
Quarter: 2013Q3

REPORT INFORMATION
  Report Type: Spontaneous
  Country: US (occurrence: US)
  Receive Date: 20130930
  Receipt Date: 20130930
  Transmission Date: 20140515
  Serious: No
  Sender: FDA-Public Use
  Company Number: US-AMGEN-USASP2013063682

PATIENT
  Age: 48 Year
  Sex: Male
  Weight: 99.77 kg

DRUGS (3)
  1. ENBREL [Suspect]
     Indication: PSORIASIS
     Dosage: TWICE A WEEK FOR THREE MONTHS AND ONCE EVERY WEEK, WAS ON A CYCLE.
     Route: 058
     Dates: start: 2003, end: 201307
  2. DIPROLENE [Concomitant]
     Dosage: UNK
  3. ZANTAC [Concomitant]
     Dosage: UNK

REACTIONS (2)
  - Therapeutic response decreased [Unknown]
  - Injection site pain [Unknown]
